FAERS Safety Report 6118433-4 (Version None)
Quarter: 2009Q1

REPORT INFORMATION
  Report Type: 
  Country: None (occurrence: None)
  Receive Date: 20090314
  Receipt Date: 20090217
  Transmission Date: 20090719
  Serious: No
  Sender: FDA-Public Use
  Company Number: US-ABBOTT-09P-163-0558064-00

PATIENT
  Sex: Female
  Weight: 52.21 kg

DRUGS (2)
  1. HUMIRA [Suspect]
     Indication: RHEUMATOID ARTHRITIS
     Route: 058
     Dates: start: 20040101
  2. NONI JUICE [Suspect]
     Indication: ANTIOXIDANT THERAPY
     Route: 048
     Dates: start: 20090201, end: 20090216

REACTIONS (2)
  - PRURITUS [None]
  - URTICARIA [None]
